FAERS Safety Report 20368602 (Version 1)
Quarter: 2022Q1

REPORT INFORMATION
  Report Type: Spontaneous
  Country: JP (occurrence: JP)
  Receive Date: 20220124
  Receipt Date: 20220124
  Transmission Date: 20220424
  Serious: No
  Sender: FDA-Public Use
  Company Number: JP-LUPIN PHARMACEUTICALS INC.-2022-00655

PATIENT
  Age: 4 Month
  Sex: Female

DRUGS (2)
  1. VANCOMYCIN [Suspect]
     Active Substance: VANCOMYCIN
     Indication: Staphylococcal infection
     Dosage: 16 MILLIGRAM/KILOGRAM, QID, INFUSION, RATE MAINTAINED AT 60 MIN
     Route: 065
  2. VANCOMYCIN [Suspect]
     Active Substance: VANCOMYCIN
     Dosage: 19 MILLIGRAM/KILOGRAM, QID,RATE WAS MAINTAINED AT 60 MIN
     Route: 065

REACTIONS (1)
  - Extravasation [Recovering/Resolving]
